FAERS Safety Report 7901321 (Version 13)
Quarter: 2014Q1

REPORT INFORMATION
  Report Type: Report from Study
  Country: DE (occurrence: DE)
  Receive Date: 20110415
  Receipt Date: 20140311
  Transmission Date: 20141002
  Serious: Yes (Hospitalization, Other)
  Sender: FDA-Public Use
  Company Number: PHHY2011DE29579

PATIENT
  Age: 87 Year
  Sex: Male
  Weight: 77 kg

DRUGS (26)
  1. AMN107 [Suspect]
     Indication: CHRONIC MYELOID LEUKAEMIA
     Dosage: 800 MG, QD
     Route: 048
     Dates: start: 20091121
  2. AMN107 [Suspect]
     Dosage: 400 MG, BID
     Route: 048
     Dates: start: 201001, end: 20101018
  3. AMN107 [Suspect]
     Dosage: 200 MG, BID
     Route: 048
     Dates: start: 20101024, end: 20101222
  4. AMN107 [Suspect]
     Dosage: 300 MG, BID
     Route: 048
     Dates: start: 20110406, end: 20111017
  5. AMN107 [Suspect]
     Dosage: 200 MG, BID
     Route: 048
     Dates: start: 20111018, end: 20120111
  6. ASS [Concomitant]
     Indication: CARDIOVASCULAR DISORDER
     Dosage: 100 MG, QD
     Dates: start: 200412
  7. ALLOPURINOL [Concomitant]
     Indication: PROPHYLAXIS
     Dates: start: 200412, end: 20101111
  8. BELOC-ZOC MITE [Concomitant]
     Indication: CARDIOVASCULAR DISORDER
     Dosage: 47.5 MG, QD
     Dates: start: 200412, end: 20101013
  9. BELOC-ZOC MITE [Concomitant]
     Indication: HYPERTENSION
  10. IMODIUM [Concomitant]
     Indication: DIARRHOEA
     Dates: start: 20080924
  11. CYTOBION [Concomitant]
     Indication: PROPHYLAXIS
     Dosage: 1000 MG EVERY 3 MONTHS
     Dates: start: 20071114
  12. ERYTHROPOIETIN [Concomitant]
     Indication: PROPHYLAXIS
     Dosage: 10000 IU EVERY WEEK
     Dates: start: 20070913
  13. OFLOXACIN [Concomitant]
     Indication: ANTIBIOTIC THERAPY
     Dates: start: 20100522, end: 20100601
  14. CIPROFLOXACIN [Concomitant]
     Indication: ANTIBIOTIC THERAPY
     Dates: start: 20100521, end: 20100611
  15. TOREM [Concomitant]
     Indication: PROPHYLAXIS
     Dates: start: 20101014, end: 20101115
  16. TOREM [Concomitant]
     Dates: start: 20101116
  17. CORVATON - SLOW RELEASE [Concomitant]
     Indication: DYSPEPSIA
     Dosage: 8 MG, BID
     Dates: start: 20101014
  18. CORVATON - SLOW RELEASE [Concomitant]
     Dosage: 8 MG, UNK
     Dates: start: 20110420
  19. DIGIMERCK [Concomitant]
     Indication: ATRIAL FIBRILLATION
     Dosage: 0.1 MG, QD
     Dates: start: 20101116
  20. CARVEDILOL [Concomitant]
     Indication: CARDIOVASCULAR DISORDER
     Dosage: 2 DF, BID
     Dates: start: 20101014
  21. AMLODIPINE [Concomitant]
     Indication: HYPERTENSION
     Dosage: 5 MG, DAY
  22. SIMVASTATIN [Concomitant]
     Indication: CARDIOVASCULAR DISORDER
     Dosage: 40 MG, QD
  23. PANTOZOL [Concomitant]
     Indication: PROPHYLAXIS
     Dosage: 40 MG, QD
  24. BLOPRESS [Concomitant]
     Indication: HYPERTENSION
     Dosage: 1 DF, QD
  25. FUROSEMIDE [Concomitant]
     Indication: CARDIAC FAILURE
     Dosage: 40 MG, DAY
     Dates: start: 201010
  26. DOXAZOSIN [Concomitant]
     Indication: HYPERTENSION
     Dosage: 4 MG, BID
     Dates: start: 201006

REACTIONS (22)
  - Inflammation [Recovering/Resolving]
  - Atrial fibrillation [Recovered/Resolved]
  - Tachyarrhythmia [Recovered/Resolved]
  - Chest pain [Recovering/Resolving]
  - Nausea [Recovered/Resolved]
  - Diarrhoea [Not Recovered/Not Resolved]
  - Pleural effusion [Recovered/Resolved]
  - Pulmonary congestion [Unknown]
  - Asthenia [Recovered/Resolved]
  - Dyspnoea [Recovered/Resolved]
  - Abdominal discomfort [Recovered/Resolved]
  - Vomiting [Recovered/Resolved]
  - General physical health deterioration [Recovered/Resolved]
  - Cardiac failure [Recovered/Resolved]
  - Fatigue [Recovered/Resolved]
  - Dyspnoea exertional [Unknown]
  - Electrocardiogram QT prolonged [Not Recovered/Not Resolved]
  - Blood lactate dehydrogenase increased [Not Recovered/Not Resolved]
  - Blood calcium decreased [Recovered/Resolved]
  - Hypokalaemia [Recovered/Resolved]
  - C-reactive protein increased [Unknown]
  - Blood alkaline phosphatase increased [Recovered/Resolved]
